FAERS Safety Report 9858216 (Version 1)
Quarter: 2014Q1

REPORT INFORMATION
  Report Type: Spontaneous
  Country: BE (occurrence: BE)
  Receive Date: 20140131
  Receipt Date: 20140131
  Transmission Date: 20141002
  Serious: Yes (Hospitalization, Other)
  Sender: FDA-Public Use
  Company Number: BE-JNJFOC-20140112943

PATIENT
  Age: 18 Year
  Sex: Female

DRUGS (4)
  1. TOPAMAX [Suspect]
     Indication: EPILEPSY
     Dosage: A HANDFUL OF 10
     Route: 048
  2. LYRICA [Suspect]
     Indication: PRODUCT USED FOR UNKNOWN INDICATION
     Route: 065
     Dates: start: 2013
  3. SIPRALEXA [Concomitant]
     Indication: DEPRESSION
     Route: 048
  4. TRAZOLAN [Concomitant]
     Indication: PRODUCT USED FOR UNKNOWN INDICATION
     Route: 065

REACTIONS (7)
  - Epilepsy [Recovering/Resolving]
  - Depression [Unknown]
  - Substance abuse [Unknown]
  - Drug dependence [Unknown]
  - Drug diversion [Unknown]
  - Decreased appetite [Unknown]
  - Weight decreased [Unknown]
